FAERS Safety Report 19107318 (Version 1)
Quarter: 2021Q2

REPORT INFORMATION
  Report Type: Spontaneous
  Country: US (occurrence: US)
  Receive Date: 20210408
  Receipt Date: 20210408
  Transmission Date: 20210717
  Serious: Yes (Hospitalization)
  Sender: FDA-Public Use
  Company Number: None

PATIENT
  Age: 71 Year
  Sex: Female
  Weight: 78 kg

DRUGS (2)
  1. CYCLOPHOSPHAMIDE. [Suspect]
     Active Substance: CYCLOPHOSPHAMIDE
     Dates: end: 20210323
  2. DOXORUBICIN HYDROCHLORIDE. [Suspect]
     Active Substance: DOXORUBICIN HYDROCHLORIDE
     Dates: end: 20210323

REACTIONS (11)
  - Dehydration [None]
  - Diarrhoea [None]
  - Vomiting [None]
  - Hyponatraemia [None]
  - Leukopenia [None]
  - Febrile neutropenia [None]
  - Nausea [None]
  - Asthenia [None]
  - Thrombocytopenia [None]
  - Abdominal pain [None]
  - Diverticulitis [None]

NARRATIVE: CASE EVENT DATE: 20210401
